FAERS Safety Report 7350927-6 (Version None)
Quarter: 2011Q1

REPORT INFORMATION
  Report Type: 
  Country: None (occurrence: None)
  Receive Date: 20110314
  Receipt Date: 20110309
  Transmission Date: 20110831
  Serious: No
  Sender: FDA-Public Use
  Company Number: US-ROXANE LABORATORIES, INC.-2011-RO-00084RO

PATIENT
  Sex: Female
  Weight: 73 kg

DRUGS (4)
  1. CALCIUM CARBONATE [Suspect]
  2. AXID [Concomitant]
     Dosage: 150 MG
  3. LOSARTAN POTASSIUM [Suspect]
     Indication: HYPERTENSION
     Dosage: 100 MG
     Route: 048
     Dates: start: 20110110
  4. MULTI-VITAMIN [Concomitant]

REACTIONS (1)
  - FAECES DISCOLOURED [None]
